FAERS Safety Report 23909377 (Version 5)
Quarter: 2024Q2

REPORT INFORMATION
  Report Type: Spontaneous
  Country: BA (occurrence: BA)
  Receive Date: 20240528
  Receipt Date: 20240626
  Transmission Date: 20240715
  Serious: Yes (Death, Hospitalization, Other)
  Sender: FDA-Public Use
  Company Number: BA-SA-SAC20240527001284

PATIENT
  Age: 66 Year
  Sex: Female
  Weight: 60 kg

DRUGS (6)
  1. ENOXAPARIN SODIUM [Suspect]
     Active Substance: ENOXAPARIN SODIUM
     Indication: Prophylaxis
     Dosage: 0.4 ML
     Route: 058
     Dates: start: 20240506, end: 20240508
  2. CEFAZOLIN [Concomitant]
     Active Substance: CEFAZOLIN
     Indication: Antibiotic prophylaxis
     Dosage: 1 G, TID
     Route: 042
     Dates: start: 20240507
  3. METRONIDAZOLE [Concomitant]
     Active Substance: METRONIDAZOLE
     Indication: Antibiotic prophylaxis
     Dosage: 500 MG, TID
     Route: 042
     Dates: start: 20240507
  4. PANTOPRAZOLE [Concomitant]
     Active Substance: PANTOPRAZOLE
     Indication: Prophylaxis
     Dosage: 40 MG
     Route: 042
     Dates: start: 20240507
  5. TRAMADOL [Concomitant]
     Active Substance: TRAMADOL\TRAMADOL HYDROCHLORIDE
     Indication: Postoperative analgesia
     Dosage: 200 MG
     Route: 042
  6. METAMIZOLE [Concomitant]
     Active Substance: METAMIZOLE
     Indication: Postoperative analgesia
     Dosage: 2.5 MG

REACTIONS (13)
  - Pulmonary embolism [Fatal]
  - Cardiopulmonary failure [Fatal]
  - Hypoxia [Fatal]
  - Asthenia [Fatal]
  - Tachypnoea [Fatal]
  - Bradycardia [Fatal]
  - Hypotension [Fatal]
  - Hypocapnia [Fatal]
  - Drug ineffective [Fatal]
  - Malaise [Fatal]
  - Dyspnoea [Fatal]
  - Cold sweat [Fatal]
  - Arrhythmia [Unknown]

NARRATIVE: CASE EVENT DATE: 20240506
